FAERS Safety Report 13098337 (Version 1)
Quarter: 2017Q1

REPORT INFORMATION
  Report Type: Spontaneous
  Country: IN (occurrence: IN)
  Receive Date: 20170109
  Receipt Date: 20170109
  Transmission Date: 20170428
  Serious: Yes (Other)
  Sender: FDA-Public Use
  Company Number: IN-MYLANLABS-2016M1058984

PATIENT

DRUGS (4)
  1. PIPERACILLIN [Concomitant]
     Active Substance: PIPERACILLIN
     Indication: SEPSIS
     Route: 065
  2. VANCOMYCIN [Suspect]
     Active Substance: VANCOMYCIN
     Indication: SEPSIS
     Route: 065
  3. TAZOBACTAM [Concomitant]
     Active Substance: TAZOBACTAM
     Indication: SEPSIS
     Route: 065
  4. DOPAMINE [Concomitant]
     Active Substance: DOPAMINE\DOPAMINE HYDROCHLORIDE
     Indication: HYPOTENSION
     Dosage: 5 MCG/KG/MIN
     Route: 050

REACTIONS (2)
  - Gastrointestinal haemorrhage [Recovered/Resolved]
  - Thrombocytopenia [Recovered/Resolved]
